FAERS Safety Report 6679030-5 (Version None)
Quarter: 2010Q2

REPORT INFORMATION
  Report Type: 
  Country: None (occurrence: None)
  Receive Date: 20100413
  Receipt Date: 20100226
  Transmission Date: 20101027
  Serious: No
  Sender: FDA-Public Use
  Company Number: PHHY2010BR11297

PATIENT
  Sex: Female

DRUGS (6)
  1. DIOVAN HCT [Suspect]
     Indication: HYPERTENSION
     Dosage: 1 (320/25 MG) IN THE MORNING
     Route: 048
  2. SELOZOK [Concomitant]
     Indication: HYPERTENSION
     Dosage: 50 MG, BID
  3. CRESTOR [Concomitant]
     Indication: BLOOD CHOLESTEROL
     Dosage: 10 MG, QD
  4. OMEPRAZOLE [Concomitant]
     Indication: GASTRIC ULCER
     Dosage: 20 MG, QD
  5. SOMALGIN CARDIO [Concomitant]
     Indication: ANTICOAGULANT THERAPY
     Dosage: 100 MG, QD
  6. ISORDIL [Concomitant]
     Dosage: 5 MG, PRN
     Route: 060

REACTIONS (6)
  - ASTHENIA [None]
  - BLOOD GLUCOSE INCREASED [None]
  - FATIGUE [None]
  - HYPERHIDROSIS [None]
  - MALAISE [None]
  - PAIN [None]
